FAERS Safety Report 20966654 (Version 1)
Quarter: 2022Q2

REPORT INFORMATION
  Report Type: Spontaneous
  Country: US (occurrence: None)
  Receive Date: 20220614
  Receipt Date: 20220614
  Transmission Date: 20220721
  Serious: Yes (Hospitalization)
  Sender: FDA-Public Use
  Company Number: None

PATIENT
  Age: 63 Year
  Sex: Male
  Weight: 92.4 kg

DRUGS (2)
  1. NIVOLUMAB [Suspect]
     Active Substance: NIVOLUMAB
     Indication: Chordoma
     Dosage: FREQUENCY : MONTHLY;?
     Route: 042
     Dates: start: 20210811, end: 20210811
  2. RELATLIMAB [Suspect]
     Active Substance: RELATLIMAB
     Indication: Chordoma
     Dosage: FREQUENCY : MONTHLY;?
     Route: 042
     Dates: start: 20210811, end: 20210811

REACTIONS (5)
  - Pyrexia [None]
  - Back pain [None]
  - Wound infection [None]
  - Spinal cord abscess [None]
  - Muscular weakness [None]

NARRATIVE: CASE EVENT DATE: 20211018
